FAERS Safety Report 14790025 (Version 5)
Quarter: 2018Q3

REPORT INFORMATION
  Report Type: Spontaneous
  Country: US (occurrence: US)
  Receive Date: 20180423
  Receipt Date: 20180920
  Transmission Date: 20181010
  Serious: Yes (Life-Threatening, Other)
  Sender: FDA-Public Use
  Company Number: US-SUN PHARMACEUTICAL INDUSTRIES LTD-2018US-170278

PATIENT
  Age: 22 Year
  Sex: Female

DRUGS (3)
  1. METFORMIN [Suspect]
     Active Substance: METFORMIN HYDROCHLORIDE
     Route: 065
  2. MELOXICAM. [Suspect]
     Active Substance: MELOXICAM
     Route: 065
  3. IBUPROFEN. [Suspect]
     Active Substance: IBUPROFEN
     Route: 065

REACTIONS (18)
  - Hypertension [Unknown]
  - Intentional overdose [Unknown]
  - Unresponsive to stimuli [Unknown]
  - Flushing [Unknown]
  - Tachypnoea [Unknown]
  - Gastrointestinal sounds abnormal [Unknown]
  - Delirium [Recovering/Resolving]
  - Blood lactic acid increased [Unknown]
  - Electrocardiogram QT prolonged [Unknown]
  - Mydriasis [Unknown]
  - Metabolic acidosis [Unknown]
  - Hypoglycaemia [Unknown]
  - Nausea [Unknown]
  - Hypotension [Unknown]
  - Anhidrosis [Unknown]
  - Tachycardia [Unknown]
  - Electrocardiogram QRS complex prolonged [Unknown]
  - Hypothermia [Unknown]
